FAERS Safety Report 8914903 (Version 11)
Quarter: 2024Q2

REPORT INFORMATION
  Report Type: Other
  Country: CA (occurrence: None)
  Receive Date: 20121119
  Receipt Date: 20240430
  Transmission Date: 20240715
  Serious: Yes (Hospitalization, Other)
  Sender: FDA-Public Use
  Company Number: CA-ROCHE-1156714

PATIENT
  Age: 54 Year
  Sex: Male
  Weight: 85.5 kg

DRUGS (7)
  1. ZELBORAF [Suspect]
     Active Substance: VEMURAFENIB
     Indication: Metastatic malignant melanoma
     Route: 048
     Dates: start: 20120803
  2. ZELBORAF [Suspect]
     Active Substance: VEMURAFENIB
     Route: 048
     Dates: start: 20120814
  3. ZELBORAF [Suspect]
     Active Substance: VEMURAFENIB
     Route: 048
     Dates: start: 20151214
  4. DILANTIN [Suspect]
     Active Substance: PHENYTOIN
     Indication: Seizure
     Route: 065
     Dates: start: 201309, end: 2013
  5. ADVIL [Concomitant]
     Active Substance: IBUPROFEN
  6. FISH OIL [Concomitant]
     Active Substance: FISH OIL
  7. DEXLANSOPRAZOLE [Concomitant]
     Active Substance: DEXLANSOPRAZOLE
     Indication: Gastrooesophageal reflux disease
     Route: 048

REACTIONS (13)
  - Rhinitis [Recovering/Resolving]
  - Radiation necrosis [Unknown]
  - Seizure [Unknown]
  - Squamous cell carcinoma [Not Recovered/Not Resolved]
  - Drug interaction [Unknown]
  - Cerebral infarction [Unknown]
  - Encephalomalacia [Unknown]
  - Joint effusion [Unknown]
  - Coronary artery disease [Unknown]
  - Fat tissue increased [Unknown]
  - Gynaecomastia [Unknown]
  - Spinal osteoarthritis [Unknown]
  - Chondroma [Recovered/Resolved]

NARRATIVE: CASE EVENT DATE: 20121016
